FAERS Safety Report 23136409 (Version 1)
Quarter: 2023Q4

REPORT INFORMATION
  Report Type: Report from Study
  Country: US (occurrence: US)
  Receive Date: 20231102
  Receipt Date: 20231102
  Transmission Date: 20240109
  Serious: Yes (Hospitalization)
  Sender: FDA-Public Use
  Company Number: US-ABBVIE-5477493

PATIENT
  Sex: Male

DRUGS (1)
  1. VENCLEXTA [Suspect]
     Active Substance: VENETOCLAX
     Indication: Acute myeloid leukaemia
     Dosage: STRENGHT-100 MG?TAKE 2 TABLET(S) BY MOUTH ONCE DAILY WITH A MEAL AND WATER AT THE SAME TIME EACH DAY
     Route: 048

REACTIONS (2)
  - Respiratory disorder [Unknown]
  - Thrombosis [Unknown]
